FAERS Safety Report 5443337-X (Version None)
Quarter: 2007Q3

REPORT INFORMATION
  Report Type: 
  Country: None (occurrence: None)
  Receive Date: 20070730
  Receipt Date: 20070409
  Transmission Date: 20080115
  Serious: Yes (Other)
  Sender: FDA-Public Use
  Company Number: 234853

PATIENT
  Age: 52 Year
  Sex: Female
  Weight: 54.4 kg

DRUGS (2)
  1. RITUXAN [Suspect]
     Indication: NON-HODGKIN'S LYMPHOMA
     Dosage: INTRAVENOUS
     Route: 042
     Dates: start: 20060701
  2. CHOLESTYRAMINE (CHOLESTYRAMINE) [Concomitant]

REACTIONS (3)
  - BODY TEMPERATURE INCREASED [None]
  - FLUSHING [None]
  - URTICARIA [None]
